FAERS Safety Report 23310423 (Version 1)
Quarter: 2023Q4

REPORT INFORMATION
  Report Type: Spontaneous
  Country: US (occurrence: US)
  Receive Date: 20231218
  Receipt Date: 20231218
  Transmission Date: 20240110
  Serious: Yes (Hospitalization, Other)
  Sender: FDA-Public Use
  Company Number: US-BRISTOL-MYERS SQUIBB COMPANY-2023-182089

PATIENT
  Age: 91 Year
  Sex: Male
  Weight: 62.14 kg

DRUGS (1)
  1. REVLIMID [Suspect]
     Active Substance: LENALIDOMIDE
     Indication: Plasma cell myeloma
     Dosage: EVERY OTHER DAY
     Route: 048

REACTIONS (3)
  - Pneumonia [Recovering/Resolving]
  - Off label use [Unknown]
  - Respiratory syncytial virus infection [Recovering/Resolving]
